FAERS Safety Report 16123011 (Version 1)
Quarter: 2019Q1

REPORT INFORMATION
  Report Type: Spontaneous
  Country: US (occurrence: US)
  Receive Date: 20190327
  Receipt Date: 20190327
  Transmission Date: 20190418
  Serious: No
  Sender: FDA-Public Use
  Company Number: US-BAYER-2019-056214

PATIENT
  Age: 57 Year
  Sex: Male
  Weight: 90 kg

DRUGS (1)
  1. ALEVE BACK AND MUSCLE PAIN [Suspect]
     Active Substance: NAPROXEN SODIUM
     Indication: PAIN
     Dosage: 2 TABLET AT THE SAME TIME
     Route: 048
     Dates: start: 20190315, end: 20190315

REACTIONS (3)
  - Poor quality product administered [Unknown]
  - Dysgeusia [Unknown]
  - Product colour issue [Unknown]

NARRATIVE: CASE EVENT DATE: 20190315
